FAERS Safety Report 6125718-4 (Version None)
Quarter: 2009Q1

REPORT INFORMATION
  Report Type: 
  Country: None (occurrence: None)
  Receive Date: 20090319
  Receipt Date: 20090319
  Transmission Date: 20090719
  Serious: Yes (Other)
  Sender: FDA-Public Use
  Company Number: None

PATIENT
  Sex: Male
  Weight: 58.6 kg

DRUGS (1)
  1. DOXORUBICIN HCL [Suspect]
     Dosage: 50 MG/M2 = 82 MG
     Dates: start: 20090115, end: 20090115

REACTIONS (4)
  - BLOOD PRESSURE DIASTOLIC DECREASED [None]
  - HEART RATE INCREASED [None]
  - INFUSION RELATED REACTION [None]
  - PO2 DECREASED [None]
